FAERS Safety Report 20975155 (Version 1)
Quarter: 2022Q2

REPORT INFORMATION
  Report Type: Spontaneous
  Country: US (occurrence: US)
  Receive Date: 20220617
  Receipt Date: 20220617
  Transmission Date: 20220721
  Serious: Yes (Other)
  Sender: FDA-Public Use
  Company Number: US-PADAGIS-2022PAD00161

PATIENT

DRUGS (1)
  1. PODOCON 25 [Suspect]
     Active Substance: PODOPHYLLUM RESIN
     Indication: Molluscum contagiosum
     Dosage: UNK, BID
     Route: 061

REACTIONS (5)
  - Chemical burn of genitalia [Not Recovered/Not Resolved]
  - Pain [Not Recovered/Not Resolved]
  - Incorrect product administration duration [Unknown]
  - Product dispensing issue [Unknown]
  - Product use in unapproved indication [Unknown]

NARRATIVE: CASE EVENT DATE: 20220604
